FAERS Safety Report 20119130 (Version 1)
Quarter: 2021Q4

REPORT INFORMATION
  Report Type: Spontaneous
  Country: US (occurrence: None)
  Receive Date: 20211125
  Receipt Date: 20211125
  Transmission Date: 20220303
  Serious: No
  Sender: FDA-Public Use
  Company Number: None

PATIENT
  Age: 55 Year
  Sex: Male
  Weight: 76.5 kg

DRUGS (1)
  1. MOBIC [Suspect]
     Active Substance: MELOXICAM
     Indication: Arthralgia
     Dosage: FREQUENCY : DAILY;?
     Route: 048
     Dates: start: 20211119

REACTIONS (2)
  - Pain in jaw [None]
  - Neck pain [None]

NARRATIVE: CASE EVENT DATE: 20211122
